FAERS Safety Report 18260312 (Version 1)
Quarter: 2020Q3

REPORT INFORMATION
  Report Type: Spontaneous
  Country: US (occurrence: US)
  Receive Date: 20200914
  Receipt Date: 20200914
  Transmission Date: 20201103
  Serious: No
  Sender: FDA-Public Use
  Company Number: US-SA-2020SA245131

PATIENT

DRUGS (8)
  1. DULERA [Concomitant]
     Active Substance: FORMOTEROL FUMARATE DIHYDRATE\MOMETASONE FUROATE
  2. ZYRTEC [Concomitant]
     Active Substance: CETIRIZINE HYDROCHLORIDE
  3. DUPIXENT [Suspect]
     Active Substance: DUPILUMAB
     Indication: DERMATITIS ATOPIC
     Dosage: 300 MG, QOW
     Route: 058
     Dates: start: 20191029
  4. ATORVASTATIN [Concomitant]
     Active Substance: ATORVASTATIN
  5. CERAVE ITCH RELIEF MOISTURIZING [Concomitant]
     Active Substance: PRAMOXINE HYDROCHLORIDE
  6. MUPIROCIN. [Concomitant]
     Active Substance: MUPIROCIN
     Dosage: 1 DF, QD
  7. TRIAMCINOLON [TRIAMCINOLONE] [Concomitant]
     Active Substance: TRIAMCINOLONE
  8. FLUTICASONE. [Concomitant]
     Active Substance: FLUTICASONE

REACTIONS (1)
  - Eczema [Not Recovered/Not Resolved]
